FAERS Safety Report 22304466 (Version 1)
Quarter: 2023Q2

REPORT INFORMATION
  Report Type: Spontaneous
  Country: US (occurrence: None)
  Receive Date: 20230509
  Receipt Date: 20230509
  Transmission Date: 20230722
  Serious: Yes (Death)
  Sender: FDA-Public Use
  Company Number: None

PATIENT
  Age: 88 Year
  Sex: Female
  Weight: 68.4 kg

DRUGS (12)
  1. REVLIMID [Suspect]
     Active Substance: LENALIDOMIDE
     Indication: Diffuse large B-cell lymphoma
     Dosage: FREQUENCY : DAILY;?
     Route: 048
     Dates: start: 20230206, end: 20230501
  2. carbidopa 25 mg-levodopa 100 mg tablet [Concomitant]
  3. DILTIAZEM [Concomitant]
     Active Substance: DILTIAZEM
  4. ELIQUIS [Concomitant]
     Active Substance: APIXABAN
  5. FUROSEMIDE [Concomitant]
     Active Substance: FUROSEMIDE
  6. IRON [Concomitant]
     Active Substance: IRON
  7. Miralax 17 gram oral powder packe [Concomitant]
  8. omeprazole 40 mg capsule,delayed release [Concomitant]
  9. potassium chloride ER 20 mEq [Concomitant]
  10. Tradjenta 5 mg tablet [Concomitant]
  11. tramadol 50 mg tablet [Concomitant]
  12. Tylenol PM Extra Strength 25 mg-500 mg table [Concomitant]

REACTIONS (1)
  - Death [None]

NARRATIVE: CASE EVENT DATE: 20230501
